FAERS Safety Report 8228409 (Version 4)
Quarter: 2013Q1

REPORT INFORMATION
  Report Type: Spontaneous
  Country: US (occurrence: US)
  Receive Date: 20111104
  Receipt Date: 20130115
  Transmission Date: 20140127
  Serious: Yes (Other)
  Sender: FDA-Public Use
  Company Number: US-ASTRAZENECA-2011SE64761

PATIENT
  Age: 72 Year
  Sex: Female
  Weight: 117 kg

DRUGS (17)
  1. ARIMIDEX [Suspect]
     Indication: BREAST CANCER FEMALE
     Route: 048
     Dates: start: 2007, end: 20120922
  2. ARIMIDEX [Suspect]
     Indication: BREAST CANCER FEMALE
     Route: 048
  3. TOPROL XL [Suspect]
     Indication: ATRIAL FIBRILLATION
     Route: 048
  4. TOPROL XL [Suspect]
     Indication: ATRIAL FIBRILLATION
     Route: 048
     Dates: start: 201204
  5. ACCOLATE [Suspect]
     Route: 048
  6. CODEINE [Suspect]
     Route: 065
  7. MORPHINE [Suspect]
     Route: 065
  8. LOSARTAN [Concomitant]
     Indication: BLOOD PRESSURE ABNORMAL
     Route: 048
     Dates: start: 2002
  9. LIPITOR [Concomitant]
     Indication: BLOOD CHOLESTEROL INCREASED
     Route: 048
     Dates: start: 2002
  10. ASPIRIN [Concomitant]
     Route: 048
     Dates: start: 201204
  11. ALLERGY RELIEF OTC [Concomitant]
     Indication: MULTIPLE ALLERGIES
     Dosage: DAILY
     Route: 048
  12. ADVAIR [Concomitant]
     Indication: ASTHMA
     Route: 055
     Dates: start: 2005
  13. FLUTICASONE [Concomitant]
     Indication: MULTIPLE ALLERGIES
     Route: 045
     Dates: start: 2005
  14. CARDIZEM [Concomitant]
     Indication: ATRIAL FIBRILLATION
     Route: 048
     Dates: start: 201204
  15. JANTOVEN [Concomitant]
     Indication: ATRIAL FIBRILLATION
     Route: 048
     Dates: start: 201204
  16. EFFEXOR [Concomitant]
     Indication: BALANCE DISORDER
     Route: 048
     Dates: start: 1998
  17. EFFEXOR [Concomitant]
     Indication: BALANCE DISORDER
     Route: 048
     Dates: start: 1998

REACTIONS (6)
  - Atrial fibrillation [Unknown]
  - Recurrent cancer [Unknown]
  - Aortic stenosis [Unknown]
  - Cardiac disorder [Unknown]
  - Drug hypersensitivity [Unknown]
  - Drug dose omission [Unknown]
